FAERS Safety Report 7451619-5 (Version None)
Quarter: 2011Q2

REPORT INFORMATION
  Report Type: 
  Country: None (occurrence: None)
  Receive Date: 20110502
  Receipt Date: 20100312
  Transmission Date: 20111010
  Serious: No
  Sender: FDA-Public Use
  Company Number: US-ASTRAZENECA-2010SE10923

PATIENT
  Age: 53 Year
  Sex: Male

DRUGS (5)
  1. OMEPRAZOLE [Suspect]
     Route: 048
  2. NEXIUM [Suspect]
     Route: 048
  3. NEURONTIN [Concomitant]
  4. KLONOPIN [Concomitant]
  5. INDERAL [Concomitant]

REACTIONS (4)
  - VOMITING [None]
  - MALAISE [None]
  - REGURGITATION [None]
  - DRUG DOSE OMISSION [None]
